FAERS Safety Report 6973505-7 (Version None)
Quarter: 2010Q3

REPORT INFORMATION
  Report Type: 
  Country: None (occurrence: None)
  Receive Date: 20100909
  Receipt Date: 20100810
  Transmission Date: 20110219
  Serious: Yes (Other)
  Sender: FDA-Public Use
  Company Number: CA-BRISTOL-MYERS SQUIBB COMPANY-15237589

PATIENT
  Age: 44 Year
  Sex: Female

DRUGS (4)
  1. ORENCIA [Suspect]
     Indication: RHEUMATOID ARTHRITIS
     Dosage: RECENT DOSE:02AUG10 NO OF INF:2, ONCE A MONTH THERAPY DURATION:Q2
     Route: 042
     Dates: start: 20100720, end: 20100801
  2. NAPROXEN [Concomitant]
  3. PANTOPRAZOLE [Concomitant]
  4. ENBREL [Concomitant]

REACTIONS (6)
  - DYSPNOEA EXERTIONAL [None]
  - FATIGUE [None]
  - HEADACHE [None]
  - NAUSEA [None]
  - PRURITUS [None]
  - RASH [None]
